FAERS Safety Report 14034104 (Version 1)
Quarter: 2017Q4

REPORT INFORMATION
  Report Type: Spontaneous
  Country: US (occurrence: US)
  Receive Date: 20171003
  Receipt Date: 20171003
  Transmission Date: 20180321
  Serious: Yes (Hospitalization, Other)
  Sender: FDA-Public Use
  Company Number: US-TESARO, INC-US-2017TSO03071

PATIENT

DRUGS (1)
  1. ZEJULA [Suspect]
     Active Substance: NIRAPARIB
     Indication: OVARIAN CANCER
     Dosage: UNK
     Route: 065

REACTIONS (6)
  - Blood pressure decreased [Unknown]
  - Adverse drug reaction [Unknown]
  - Dyspnoea [Unknown]
  - Platelet transfusion [Unknown]
  - Tremor [Unknown]
  - Palpitations [Unknown]
